FAERS Safety Report 6148377-3 (Version None)
Quarter: 2009Q2

REPORT INFORMATION
  Report Type: 
  Country: None (occurrence: None)
  Receive Date: 20090408
  Receipt Date: 20090327
  Transmission Date: 20091009
  Serious: Yes (Other)
  Sender: FDA-Public Use
  Company Number: BR-JNJFOC-20090400265

PATIENT

DRUGS (4)
  1. INFLIXIMAB [Suspect]
     Indication: POLYCHONDRITIS
     Dosage: 10 INFUSIONS ON UNSPECIFIED DATES
     Route: 042
  2. CORTICOSTEROIDS [Concomitant]
     Indication: PREMEDICATION
     Route: 042
  3. ANTIHISTAMINES [Concomitant]
     Indication: PREMEDICATION
  4. ACETAMINOPHEN [Concomitant]
     Indication: PREMEDICATION

REACTIONS (2)
  - ANAPHYLACTIC REACTION [None]
  - INFUSION RELATED REACTION [None]
